FAERS Safety Report 4744376-4 (Version None)
Quarter: 2005Q3

REPORT INFORMATION
  Report Type: 
  Country: None (occurrence: None)
  Receive Date: 20050811
  Receipt Date: 20050811
  Transmission Date: 20060218
  Serious: Yes (Hospitalization)
  Sender: FDA-Public Use
  Company Number: None

PATIENT
  Age: 54 Year
  Sex: Male

DRUGS (8)
  1. PIOGLITAZONE 15 MG [Suspect]
     Indication: DIABETES MELLITUS
     Dosage: 15 MG PO
     Route: 048
  2. INSULIN [Concomitant]
  3. TACROLIMUS [Concomitant]
  4. MYCOPHENOLATE [Concomitant]
  5. ZANTAC [Concomitant]
  6. PROAMANTINE [Concomitant]
  7. CALCIUM GLUCONATE [Concomitant]
  8. CONSENSUS INTERFERON [Concomitant]

REACTIONS (4)
  - HEPATIC ENZYME INCREASED [None]
  - HEPATOCELLULAR DAMAGE [None]
  - HEPATOTOXICITY [None]
  - VIRAL INFECTION [None]
